FAERS Safety Report 10473798 (Version 1)
Quarter: 2014Q3

REPORT INFORMATION
  Report Type: Spontaneous
  Country: PL (occurrence: PL)
  Receive Date: 20140924
  Receipt Date: 20140924
  Transmission Date: 20150326
  Serious: Yes (Other)
  Sender: FDA-Public Use
  Company Number: PL-ACTAVIS-2014-20378

PATIENT
  Age: 54 Year
  Sex: Female

DRUGS (1)
  1. VINORELBINE [Suspect]
     Active Substance: VINORELBINE\VINORELBINE TARTRATE
     Indication: SMALL CELL LUNG CANCER
     Dosage: UNK, CYCLICAL; 3 CYCLES
     Route: 065
     Dates: start: 200511, end: 200601

REACTIONS (2)
  - Oral candidiasis [Unknown]
  - Anaemia [Unknown]
